FAERS Safety Report 15731497 (Version 1)
Quarter: 2018Q4

REPORT INFORMATION
  Report Type: Spontaneous
  Country: FR (occurrence: FR)
  Receive Date: 20181217
  Receipt Date: 20181217
  Transmission Date: 20190205
  Serious: Yes (Other)
  Sender: FDA-Public Use
  Company Number: FR-MYLANLABS-2018M1093261

PATIENT
  Age: 53 Year
  Sex: Male
  Weight: 68 kg

DRUGS (4)
  1. DILTIAZEM MYLAN LP 300 MG, G?LULE ? LIB?RATION PROLONG?E [Suspect]
     Active Substance: DILTIAZEM
     Indication: HYPERTENSION
     Dosage: 1 DOSAGE FORM, QD
     Route: 048
  2. BIPRETERAX                         /01421201/ [Suspect]
     Active Substance: INDAPAMIDE\PERINDOPRIL ERBUMINE
     Indication: HYPERTENSION
     Dosage: 1 DOSAGE FORM, QD
     Route: 048
  3. TRUVADA [Suspect]
     Active Substance: EMTRICITABINE\TENOFOVIR DISOPROXIL FUMARATE
     Indication: PROPHYLAXIS AGAINST HIV INFECTION
     Dosage: 1 DOSAGE FORM, UNK
     Route: 048
  4. IBUPROFENE BIOGARAN [Suspect]
     Active Substance: IBUPROFEN
     Indication: BACK PAIN
     Dosage: 2 DOSAGE FORM, PRN
     Route: 048

REACTIONS (1)
  - Acute kidney injury [Recovered/Resolved]

NARRATIVE: CASE EVENT DATE: 20180504
